FAERS Safety Report 4374111-3 (Version None)
Quarter: 2004Q2

REPORT INFORMATION
  Report Type: 
  Country: None (occurrence: None)
  Receive Date: 20040607
  Receipt Date: 20040514
  Transmission Date: 20050107
  Serious: Yes (Other)
  Sender: FDA-Public Use
  Company Number: NL-AMGEN-UK076567

PATIENT
  Sex: Female
  Weight: 95 kg

DRUGS (2)
  1. NEUPOGEN [Suspect]
     Indication: CHEMOTHERAPY
     Route: 058
     Dates: start: 20040115, end: 20040124
  2. DOCETAXEL [Concomitant]
     Route: 042
     Dates: end: 20040121

REACTIONS (3)
  - BLOOD ALKALINE PHOSPHATASE INCREASED [None]
  - PLEURAL EFFUSION [None]
  - RENAL FAILURE [None]
